FAERS Safety Report 5078741-5 (Version None)
Quarter: 2006Q3

REPORT INFORMATION
  Report Type: 
  Country: None (occurrence: None)
  Receive Date: 20060808
  Receipt Date: 20060725
  Transmission Date: 20061208
  Serious: Yes (Death, Hospitalization)
  Sender: FDA-Public Use
  Company Number: 163-21880-06070896

PATIENT
  Age: 68 Year
  Sex: Male
  Weight: 78.9259 kg

DRUGS (4)
  1. REVLIMID [Suspect]
     Indication: MYELODYSPLASTIC SYNDROME
     Dosage: 10 MG, 1 IN 1 D, ORAL
     Route: 048
     Dates: start: 20060206, end: 20060701
  2. ZANTAC [Concomitant]
  3. ZINC [Concomitant]
  4. MULTIVITAMIN [Concomitant]

REACTIONS (3)
  - ANAEMIA [None]
  - BRAIN NATRIURETIC PEPTIDE INCREASED [None]
  - BRONCHOPNEUMONIA [None]
